FAERS Safety Report 15326718 (Version 1)
Quarter: 2018Q3

REPORT INFORMATION
  Report Type: Spontaneous
  Country: US (occurrence: US)
  Receive Date: 20180828
  Receipt Date: 20180828
  Transmission Date: 20181010
  Serious: No
  Sender: FDA-Public Use
  Company Number: US-AMAG PHARMACEUTICALS, INC.-AMAG201802867

PATIENT
  Age: 67 Year
  Sex: Female

DRUGS (4)
  1. INTRAROSA [Suspect]
     Active Substance: PRASTERONE
     Indication: LIBIDO DISORDER
  2. VALTREX [Concomitant]
     Active Substance: VALACYCLOVIR HYDROCHLORIDE
     Indication: PRODUCT USED FOR UNKNOWN INDICATION
     Dosage: 500 MG, QD
     Route: 065
  3. REMERON [Concomitant]
     Active Substance: MIRTAZAPINE
     Indication: PRODUCT USED FOR UNKNOWN INDICATION
     Dosage: 11 MG, QD
     Route: 065
  4. INTRAROSA [Suspect]
     Active Substance: PRASTERONE
     Indication: INCONTINENCE
     Dosage: 6.5 MG, QHS
     Route: 067
     Dates: start: 20171207, end: 20171210

REACTIONS (9)
  - Arthralgia [Recovered/Resolved]
  - Off label use [Recovered/Resolved]
  - Mycotic allergy [Not Recovered/Not Resolved]
  - Allergy test positive [Recovered/Resolved]
  - Hypersensitivity [Recovered/Resolved]
  - Abdominal distension [Not Recovered/Not Resolved]
  - Dust allergy [Not Recovered/Not Resolved]
  - Joint swelling [Recovered/Resolved]
  - Seasonal allergy [Not Recovered/Not Resolved]

NARRATIVE: CASE EVENT DATE: 20171208
